FAERS Safety Report 15170564 (Version 1)
Quarter: 2018Q3

REPORT INFORMATION
  Report Type: Spontaneous
  Country: US (occurrence: US)
  Receive Date: 20180622
  Receipt Date: 20180622
  Transmission Date: 20181010
  Serious: No
  Sender: FDA-Public Use
  Company Number: None

PATIENT
  Age: 12 Year
  Sex: Female
  Weight: 102.06 kg

DRUGS (1)
  1. OCTAGAM IMMUNE GLOBULIN (HUMAN) [Suspect]
     Active Substance: HUMAN IMMUNOGLOBULIN G
     Indication: POLYNEUROPATHY IDIOPATHIC PROGRESSIVE
     Dosage: ?          OTHER FREQUENCY:EVERY WEEKS;?
     Route: 042
     Dates: start: 20171010, end: 20171010

REACTIONS (8)
  - Infusion related reaction [None]
  - Rash [None]
  - Scratch [None]
  - Inflammation [None]
  - Dysphagia [None]
  - Cough [None]
  - Throat tightness [None]
  - Urticaria [None]

NARRATIVE: CASE EVENT DATE: 20171010
